FAERS Safety Report 22070329 (Version 1)
Quarter: 2023Q1

REPORT INFORMATION
  Report Type: Spontaneous
  Country: US (occurrence: US)
  Receive Date: 20230307
  Receipt Date: 20230307
  Transmission Date: 20230417
  Serious: Yes (Other)
  Sender: FDA-Public Use
  Company Number: US-PFIZER INC-PV202300042859

PATIENT
  Sex: Male

DRUGS (2)
  1. PAXLOVID [Interacting]
     Active Substance: NIRMATRELVIR\RITONAVIR
     Indication: COVID-19 treatment
     Dosage: UNK
  2. TRIAZOLAM [Interacting]
     Active Substance: TRIAZOLAM
     Dosage: UNK

REACTIONS (6)
  - Drug interaction [Unknown]
  - Deafness [Unknown]
  - Dizziness [Unknown]
  - Nausea [Unknown]
  - Tinnitus [Unknown]
  - Balance disorder [Unknown]
